FAERS Safety Report 6957033-0 (Version None)
Quarter: 2010Q3

REPORT INFORMATION
  Report Type: 
  Country: None (occurrence: None)
  Receive Date: 20100827
  Receipt Date: 20100827
  Transmission Date: 20110219
  Serious: No
  Sender: FDA-Public Use
  Company Number: None

PATIENT
  Age: 28 Year
  Sex: Female
  Weight: 81.6475 kg

DRUGS (1)
  1. GIANVI  3MG/0.02MG TEVA [Suspect]
     Indication: CONTRACEPTION
     Dosage: 1 TAB./DAY
     Dates: start: 20100712, end: 20100808

REACTIONS (3)
  - ANGER [None]
  - DEPRESSION [None]
  - PRODUCT SUBSTITUTION ISSUE [None]
